FAERS Safety Report 6729761-3 (Version None)
Quarter: 2010Q2

REPORT INFORMATION
  Report Type: 
  Country: None (occurrence: None)
  Receive Date: 20100518
  Receipt Date: 20100512
  Transmission Date: 20101027
  Serious: Yes (Hospitalization)
  Sender: FDA-Public Use
  Company Number: BE-WYE-G06063910

PATIENT
  Age: 32 Year
  Sex: Male
  Weight: 78 kg

DRUGS (1)
  1. REFACTO [Suspect]
     Indication: FACTOR VIII INHIBITION
     Dosage: PROPHYLACTIC, ON DEMAND: 30 IU/KG
     Route: 042
     Dates: start: 20040101, end: 20100416

REACTIONS (2)
  - ANTI FACTOR VIII ANTIBODY TEST [None]
  - HAEMORRHAGE [None]
